FAERS Safety Report 5818510-9 (Version None)
Quarter: 2008Q3

REPORT INFORMATION
  Report Type: 
  Country: None (occurrence: None)
  Receive Date: 20080718
  Receipt Date: 20080703
  Transmission Date: 20090109
  Serious: Yes (Hospitalization)
  Sender: FDA-Public Use
  Company Number: HE02-06550007SAE01

PATIENT
  Age: 59 Year
  Sex: Male
  Weight: 94.7111 kg

DRUGS (9)
  1. RIFAXIMIN (RIFAXIMIN) [Suspect]
     Indication: HEPATIC ENCEPHALOPATHY
     Dosage: 1100 MG (550 MG, 2 IN 1 D) , ORAL; 1100 MG (550 MG, 2 IN 1 D), ORAL
     Route: 048
     Dates: start: 20080317, end: 20080608
  2. RIFAXIMIN (RIFAXIMIN) [Suspect]
     Indication: HEPATIC ENCEPHALOPATHY
     Dosage: 1100 MG (550 MG, 2 IN 1 D) , ORAL; 1100 MG (550 MG, 2 IN 1 D), ORAL
     Route: 048
     Dates: start: 20080616
  3. LASIX [Concomitant]
  4. AMILORIDE HCL [Concomitant]
  5. PRILOSEC [Concomitant]
  6. LACTULOSE [Concomitant]
  7. ATENOLOL [Concomitant]
  8. CALCITRIOL [Concomitant]
  9. HYDROXYZINE [Concomitant]

REACTIONS (9)
  - ANAEMIA [None]
  - ATELECTASIS [None]
  - CAMPYLOBACTER INTESTINAL INFECTION [None]
  - DEHYDRATION [None]
  - HAEMATEMESIS [None]
  - HYPOKALAEMIA [None]
  - HYPOMAGNESAEMIA [None]
  - STAPHYLOCOCCAL INFECTION [None]
  - WEIGHT DECREASED [None]
